FAERS Safety Report 8112260 (Version 4)
Quarter: 2014Q4

REPORT INFORMATION
  Report Type: Spontaneous
  Country: US (occurrence: US)
  Receive Date: 20110830
  Receipt Date: 20141205
  Transmission Date: 20150529
  Serious: Yes (Hospitalization, Other)
  Sender: FDA-Public Use
  Company Number: US-BAYER-2011-026490

PATIENT
  Age: 26 Year
  Sex: Female
  Weight: 47.62 kg

DRUGS (3)
  1. MAGNESIUM CITRATE. [Concomitant]
     Active Substance: MAGNESIUM CITRATE
  2. FLEET NOS [Concomitant]
     Active Substance: BISACODYL OR GLYCERIN OR MINERAL OIL OR SODIUM PHOSPHATE, DIBASIC\SODIUM PHOSPHATE, MONOBASIC
  3. MIRENA [Suspect]
     Active Substance: LEVONORGESTREL
     Indication: CONTRACEPTION
     Dosage: 20 MCG/24HR, CONT
     Route: 015
     Dates: start: 20080415, end: 20101228

REACTIONS (32)
  - Nausea [Recovered/Resolved]
  - Pelvic pain [None]
  - Emotional distress [None]
  - Medical device discomfort [None]
  - Abdominal pain [None]
  - Dizziness [None]
  - Fatigue [Recovered/Resolved]
  - Asthenia [None]
  - Device issue [None]
  - Feeling hot [None]
  - Post procedural haemorrhage [None]
  - Depression [Recovered/Resolved]
  - Alopecia [None]
  - Polymenorrhoea [None]
  - Menorrhagia [None]
  - Abdominal pain lower [None]
  - Internal injury [None]
  - Uterine perforation [None]
  - Genital haemorrhage [None]
  - Hyperhidrosis [None]
  - Mood altered [Recovered/Resolved]
  - Weight loss poor [None]
  - Dysmenorrhoea [None]
  - Injury [None]
  - Procedural pain [None]
  - Abdominal distension [Recovered/Resolved]
  - Abortion spontaneous [None]
  - Weight increased [None]
  - Fear [None]
  - Vision blurred [None]
  - Anxiety [Recovered/Resolved]
  - Depressed mood [Recovered/Resolved]

NARRATIVE: CASE EVENT DATE: 2008
